FAERS Safety Report 14633650 (Version 1)
Quarter: 2018Q1

REPORT INFORMATION
  Report Type: Spontaneous
  Country: CZ (occurrence: CZ)
  Receive Date: 20180314
  Receipt Date: 20180314
  Transmission Date: 20180509
  Serious: Yes (Other)
  Sender: FDA-Public Use
  Company Number: CZ-CIPLA LTD.-2018CZ11196

PATIENT

DRUGS (3)
  1. UNILAT [Concomitant]
     Indication: PRODUCT USED FOR UNKNOWN INDICATION
     Dosage: UNK
     Route: 065
  2. TEBOKAN [Concomitant]
     Active Substance: GINKGO
     Indication: PRODUCT USED FOR UNKNOWN INDICATION
     Dosage: UNK
     Route: 065
  3. DONEPEZIL. [Suspect]
     Active Substance: DONEPEZIL
     Indication: DEMENTIA ALZHEIMER^S TYPE
     Dosage: 10 MG, DAILY
     Route: 048
     Dates: start: 20170920, end: 20171030

REACTIONS (5)
  - Oedema [Recovering/Resolving]
  - Gastrointestinal hypomotility [Recovering/Resolving]
  - Dizziness [Recovering/Resolving]
  - Hallucination [Recovering/Resolving]
  - Abdominal discomfort [Recovering/Resolving]
